FAERS Safety Report 4894961-4 (Version None)
Quarter: 2006Q1

REPORT INFORMATION
  Report Type: 
  Country: None (occurrence: None)
  Receive Date: 20060130
  Receipt Date: 20050518
  Transmission Date: 20060701
  Serious: No
  Sender: FDA-Public Use
  Company Number: US-BRISTOL-MYERS SQUIBB COMPANY-12973772

PATIENT
  Age: 28 Year
  Sex: Female
  Weight: 68 kg

DRUGS (2)
  1. GLUCOPHAGE [Suspect]
     Indication: INSULIN RESISTANCE
     Route: 048
     Dates: start: 20050517
  2. TRIVORA-21 [Concomitant]

REACTIONS (1)
  - DIARRHOEA [None]
